FAERS Safety Report 10060373 (Version 2)
Quarter: 2014Q2

REPORT INFORMATION
  Report Type: Spontaneous
  Country: PL (occurrence: PL)
  Receive Date: 20140404
  Receipt Date: 20140509
  Transmission Date: 20141212
  Serious: Yes (Hospitalization)
  Sender: FDA-Public Use
  Company Number: PL-BAXTER-2014BAX015874

PATIENT
  Age: 4 Year
  Sex: Male

DRUGS (3)
  1. FEIBA NF [Suspect]
     Indication: HAEMORRHAGE PROPHYLAXIS
     Route: 042
  2. FEIBA NF [Suspect]
     Indication: IMMUNE TOLERANCE INDUCTION
     Route: 042
  3. OCTANATE [Suspect]
     Indication: IMMUNE TOLERANCE INDUCTION
     Dosage: 1750J
     Route: 065

REACTIONS (5)
  - Inflammation [Recovered/Resolved]
  - Venous thrombosis [Recovered/Resolved]
  - Injection site pain [Recovered/Resolved]
  - Injection site swelling [Recovered/Resolved]
  - Injection site erythema [Recovered/Resolved]
